FAERS Safety Report 6107614-1 (Version None)
Quarter: 2009Q1

REPORT INFORMATION
  Report Type: 
  Country: None (occurrence: None)
  Receive Date: 20090302
  Receipt Date: 20080922
  Transmission Date: 20090719
  Serious: Yes (Other)
  Sender: FDA-Public Use
  Company Number: WAES 0810USA00032

PATIENT
  Age: 68 Year
  Sex: Female

DRUGS (5)
  1. PRINIVIL [Suspect]
     Dosage: PO
     Route: 048
  2. LASIX [Concomitant]
  3. DIGOXIN [Concomitant]
  4. GLYBURIDE [Concomitant]
  5. METOPROLOL TARTRATE [Concomitant]

REACTIONS (2)
  - HYPERKALAEMIA [None]
  - RENAL FAILURE ACUTE [None]
